FAERS Safety Report 4937296-3 (Version None)
Quarter: 2006Q1

REPORT INFORMATION
  Report Type: 
  Country: None (occurrence: None)
  Receive Date: 20060307
  Receipt Date: 20060307
  Transmission Date: 20060701
  Serious: Yes (Hospitalization, Other)
  Sender: FDA-Public Use
  Company Number: None

PATIENT
  Sex: Female
  Weight: 119 kg

DRUGS (1)
  1. NOLVADEX [Suspect]
     Indication: OVARIAN EPITHELIAL CANCER
     Dosage: 280 MG

REACTIONS (1)
  - PULMONARY EMBOLISM [None]
